FAERS Safety Report 5407920-X (Version None)
Quarter: 2007Q3

REPORT INFORMATION
  Report Type: 
  Country: None (occurrence: None)
  Receive Date: 20070803
  Receipt Date: 20070725
  Transmission Date: 20080115
  Serious: Yes (Death, Hospitalization)
  Sender: FDA-Public Use
  Company Number: GXKR2007US06386

PATIENT
  Age: 70 Year
  Sex: Female

DRUGS (2)
  1. WARFARIN SODIUM [Suspect]
     Indication: ATRIAL FIBRILLATION
     Dosage: 5 MG
  2. LEVOFLOXACIN [Suspect]
     Indication: PNEUMONIA

REACTIONS (19)
  - ABDOMINAL PAIN UPPER [None]
  - ABDOMINAL TENDERNESS [None]
  - ANOXIC ENCEPHALOPATHY [None]
  - BODY TEMPERATURE INCREASED [None]
  - CARDIAC ARREST [None]
  - CARDIAC TAMPONADE [None]
  - CARDIOMEGALY [None]
  - DRUG INTERACTION [None]
  - DYSPNOEA [None]
  - DYSPNOEA EXERTIONAL [None]
  - HYPOTENSION [None]
  - INTERNATIONAL NORMALISED RATIO INCREASED [None]
  - MULTI-ORGAN FAILURE [None]
  - NAUSEA [None]
  - PERICARDIAL DRAINAGE [None]
  - PERICARDIAL EFFUSION [None]
  - PERICARDIAL HAEMORRHAGE [None]
  - PLEURAL EFFUSION [None]
  - SEPSIS [None]
